FAERS Safety Report 5578424-9 (Version None)
Quarter: 2007Q4

REPORT INFORMATION
  Report Type: 
  Country: None (occurrence: None)
  Receive Date: 20071231
  Receipt Date: 20071220
  Transmission Date: 20080405
  Serious: Yes (Other)
  Sender: FDA-Public Use
  Company Number: US-PFIZER INC-2007107418

PATIENT
  Sex: Female
  Weight: 90.454 kg

DRUGS (5)
  1. LYRICA [Suspect]
     Indication: NEURALGIA
     Dates: start: 20071126, end: 20071130
  2. LYRICA [Suspect]
     Indication: HYPOAESTHESIA
  3. ACIPHEX [Concomitant]
  4. HYDROMORPHONE HCL [Concomitant]
  5. DIAZEPAM [Concomitant]

REACTIONS (3)
  - SKIN HAEMORRHAGE [None]
  - SKIN LESION [None]
  - WEIGHT INCREASED [None]
